FAERS Safety Report 12643541 (Version 2)
Quarter: 2017Q1

REPORT INFORMATION
  Report Type: Spontaneous
  Country: US (occurrence: US)
  Receive Date: 20160811
  Receipt Date: 20170316
  Transmission Date: 20170428
  Serious: Yes (Hospitalization, Other)
  Sender: FDA-Public Use
  Company Number: US-TEVA-666864USA

PATIENT
  Sex: Female
  Weight: 104.78 kg

DRUGS (3)
  1. AYGESTIN [Concomitant]
     Active Substance: NORETHINDRONE ACETATE
     Dosage: 10 MILLIGRAM DAILY;
     Route: 048
  2. PROMETRIUM [Concomitant]
     Active Substance: PROGESTERONE
     Dosage: 200 MILLIGRAM DAILY; AS DIRECTED
     Route: 048
  3. NORETHINDRONE. [Suspect]
     Active Substance: NORETHINDRONE
     Indication: ENDOMETRIOSIS
     Route: 065

REACTIONS (9)
  - Liver injury [Unknown]
  - Syncope [Unknown]
  - Hypertension [Unknown]
  - Alanine aminotransferase increased [Unknown]
  - Dizziness [Unknown]
  - Liver function test abnormal [Not Recovered/Not Resolved]
  - Aspartate aminotransferase increased [Unknown]
  - Vaginal haemorrhage [Unknown]
  - Endometrial thickening [Unknown]

NARRATIVE: CASE EVENT DATE: 2015
